FAERS Safety Report 7076212-8 (Version None)
Quarter: 2010Q4

REPORT INFORMATION
  Report Type: 
  Country: None (occurrence: None)
  Receive Date: 20101101
  Receipt Date: 20101020
  Transmission Date: 20110411
  Serious: Yes (Other)
  Sender: FDA-Public Use
  Company Number: US-BAYER-201038676NA

PATIENT
  Age: 0 Hour
  Sex: Male
  Weight: 2.223 kg

DRUGS (1)
  1. MIRENA [Suspect]
     Indication: DRUG EXPOSURE DURING PREGNANCY
     Dosage: FREQUENCY: CONTINUOUS
     Route: 064
     Dates: start: 20090402, end: 20091028

REACTIONS (1)
  - SMALL FOR DATES BABY [None]
